FAERS Safety Report 5266207-9 (Version None)
Quarter: 2007Q1

REPORT INFORMATION
  Report Type: 
  Country: None (occurrence: None)
  Receive Date: 20070315
  Receipt Date: 20070308
  Transmission Date: 20070707
  Serious: Yes (Other)
  Sender: FDA-Public Use
  Company Number: US-GLAXOSMITHKLINE-A0642874A

PATIENT
  Age: 52 Year
  Sex: Female

DRUGS (2)
  1. ADVAIR DISKUS 100/50 [Suspect]
     Indication: ASTHMA
     Route: 055
  2. NASONEX [Suspect]
     Indication: ASTHMA
     Route: 055

REACTIONS (5)
  - DETACHMENT OF RETINAL PIGMENT EPITHELIUM [None]
  - EYE DISORDER [None]
  - METAMORPHOPSIA [None]
  - RETINAL HAEMORRHAGE [None]
  - VISION BLURRED [None]
